FAERS Safety Report 4816473-6 (Version None)
Quarter: 2005Q4

REPORT INFORMATION
  Report Type: 
  Country: None (occurrence: None)
  Receive Date: 20051028
  Receipt Date: 20051021
  Transmission Date: 20060501
  Serious: Yes (Hospitalization, Other)
  Sender: FDA-Public Use
  Company Number: HQWYE156321OCT05

PATIENT
  Age: 43 Year
  Sex: Female

DRUGS (10)
  1. PANTOPRAZOLE SODIUM [Suspect]
     Dosage: 40 MG 1X PER 1 DAY, ORAL
     Route: 048
     Dates: start: 20050915, end: 20050918
  2. OFLOCET (OFLOXACIN, ) [Suspect]
     Indication: PYELONEPHRITIS
     Dosage: SEE IMAGE, ORAL
     Route: 048
     Dates: start: 20050811, end: 20050821
  3. OFLOCET (OFLOXACIN, ) [Suspect]
     Indication: PYELONEPHRITIS
     Dosage: SEE IMAGE, ORAL
     Route: 048
     Dates: start: 20050916, end: 20050917
  4. ACETAMINOPHEN [Suspect]
     Dosage: 1 G 1X PER 1 DAY, INTRAVENOUS
     Route: 042
     Dates: start: 20050916, end: 20050101
  5. KETOPROFEN [Suspect]
     Dosage: 100 MG 2X PER 1 DAY, INTRAVENOUS
     Route: 042
     Dates: start: 20050915, end: 20050918
  6. BISOPROLOL FUMARATE [Suspect]
     Indication: ESSENTIAL HYPERTENSION
     Dosage: DOSE FORM 10 MG, ORAL
     Route: 048
     Dates: start: 20050901, end: 20050923
  7. SPASFON (PHLOROGLUCINOL/TRIMETHYLPHLOROGLUCINOL, [Suspect]
     Dosage: 2 DOSAGE FORM 1X PER 1 DAY, INTRAVENOUS
     Route: 042
     Dates: start: 20050915, end: 20050918
  8. CILEST (ETHINYLESTRADIOL/ONORGESTIMATE) [Concomitant]
  9. DOLIPRANE (PARACETAMOL [Concomitant]
  10. OMEPRAZOLE [Concomitant]

REACTIONS (4)
  - ANTINUCLEAR ANTIBODY POSITIVE [None]
  - CHOLELITHIASIS [None]
  - HYPERTENSION [None]
  - THROMBOCYTOPENIA [None]
